FAERS Safety Report 15338194 (Version 2)
Quarter: 2018Q3

REPORT INFORMATION
  Report Type: Spontaneous
  Country: US (occurrence: US)
  Receive Date: 20180831
  Receipt Date: 20180831
  Transmission Date: 20181010
  Serious: No
  Sender: FDA-Public Use
  Company Number: US-BAUSCH-BL-2018-021417

PATIENT
  Age: 67 Year
  Sex: Male

DRUGS (2)
  1. BEPREVE [Suspect]
     Active Substance: BEPOTASTINE BESILATE
     Indication: DRY EYE
     Route: 047
     Dates: start: 20180507, end: 201805
  2. BEPREVE [Suspect]
     Active Substance: BEPOTASTINE BESILATE
     Indication: INFLAMMATION

REACTIONS (1)
  - Dysphonia [Not Recovered/Not Resolved]

NARRATIVE: CASE EVENT DATE: 201805
